FAERS Safety Report 19942097 (Version 1)
Quarter: 2021Q4

REPORT INFORMATION
  Report Type: Spontaneous
  Country: US (occurrence: US)
  Receive Date: 20211011
  Receipt Date: 20211011
  Transmission Date: 20220303
  Serious: Yes (Death)
  Sender: FDA-Public Use
  Company Number: None

PATIENT
  Age: 79 Year
  Sex: Female
  Weight: 67.3 kg

DRUGS (2)
  1. ALTEPLASE [Suspect]
     Active Substance: ALTEPLASE
     Indication: Cerebrovascular accident
     Route: 040
     Dates: start: 20210718, end: 20210718
  2. Tranexamic Acid 1 g [Concomitant]
     Dates: start: 20210719, end: 20210719

REACTIONS (1)
  - Post procedural haemorrhage [None]

NARRATIVE: CASE EVENT DATE: 20210718
